FAERS Safety Report 8221192-2 (Version None)
Quarter: 2012Q1

REPORT INFORMATION
  Report Type: 
  Country: None (occurrence: None)
  Receive Date: 20120312
  Receipt Date: 20120302
  Transmission Date: 20120608
  Serious: Yes (Death)
  Sender: FDA-Public Use
  Company Number: DSA_55311_2012

PATIENT
  Age: 45 Year
  Sex: Female
  Weight: 47.1741 kg

DRUGS (3)
  1. OXYCODONE/IBUPROFEN [Concomitant]
  2. CLONAZEPAM [Concomitant]
  3. XENAZINE [Suspect]
     Indication: HUNTINGTON'S DISEASE
     Dosage: 25 MG, TID, ORAL
     Route: 048
     Dates: start: 20111120, end: 20120224

REACTIONS (1)
  - DEATH [None]
